FAERS Safety Report 14310216 (Version 1)
Quarter: 2017Q4

REPORT INFORMATION
  Report Type: Spontaneous
  Country: JP (occurrence: JP)
  Receive Date: 20171220
  Receipt Date: 20171220
  Transmission Date: 20180321
  Serious: Yes (Other)
  Sender: FDA-Public Use
  Company Number: JP-SEATTLE GENETICS-2017SGN03181

PATIENT
  Age: 47 Year
  Sex: Male

DRUGS (2)
  1. ADCETRIS [Suspect]
     Active Substance: BRENTUXIMAB VEDOTIN
     Dosage: 100 MG, UNK
     Route: 050
  2. ADCETRIS [Suspect]
     Active Substance: BRENTUXIMAB VEDOTIN
     Indication: HODGKIN^S DISEASE
     Dosage: 150 MG, UNK
     Route: 050

REACTIONS (2)
  - Hypersensitivity [Recovering/Resolving]
  - Hepatic function abnormal [Unknown]
